FAERS Safety Report 8490784 (Version 6)
Quarter: 2013Q2

REPORT INFORMATION
  Report Type: Spontaneous
  Country: US (occurrence: US)
  Receive Date: 20120403
  Receipt Date: 20130613
  Transmission Date: 20140414
  Serious: Yes (Other)
  Sender: FDA-Public Use
  Company Number: US-PFIZER INC-2012079675

PATIENT
  Age: 44 Year
  Sex: Female
  Weight: 104 kg

DRUGS (3)
  1. LYRICA [Suspect]
     Indication: FIBROMYALGIA
     Dosage: 150 MG, 2X/DAY
     Dates: start: 2010
  2. VISTARIL [Suspect]
     Dosage: UNK
  3. EFFEXOR [Suspect]
     Dosage: UNK

REACTIONS (5)
  - Drug withdrawal syndrome [Unknown]
  - Headache [Unknown]
  - Malaise [Unknown]
  - Pain [Unknown]
  - Nausea [Not Recovered/Not Resolved]
